FAERS Safety Report 6987822-8 (Version None)
Quarter: 2010Q3

REPORT INFORMATION
  Report Type: 
  Country: None (occurrence: None)
  Receive Date: 20100830
  Receipt Date: 20090824
  Transmission Date: 20110219
  Serious: Yes (Hospitalization)
  Sender: FDA-Public Use
  Company Number: CIP09002309

PATIENT
  Age: 51 Year
  Sex: Female

DRUGS (4)
  1. ASACOL [Suspect]
     Indication: COLITIS ULCERATIVE
     Dosage: 4800 MG DAILY, ORAL ; 3200 MG, DAILY
     Route: 048
     Dates: start: 20070101
  2. LOMOTIL /00034001/ (ATROPINE SULFATE, DIPHENOXYLATE HYDROCHLORIDE) [Concomitant]
  3. LEVBID (HYOSCYAMINE SULFATE) [Concomitant]
  4. XANAX [Concomitant]

REACTIONS (3)
  - COLITIS ULCERATIVE [None]
  - LARGE INTESTINAL HAEMORRHAGE [None]
  - MEDICATION RESIDUE [None]
